FAERS Safety Report 11816030 (Version 1)
Quarter: 2015Q4

REPORT INFORMATION
  Report Type: Spontaneous
  Country: US (occurrence: US)
  Receive Date: 20151209
  Receipt Date: 20151209
  Transmission Date: 20160305
  Serious: No
  Sender: FDA-Public Use
  Company Number: US-GALDERMA-US15001925

PATIENT
  Age: 30 Year
  Sex: Female

DRUGS (4)
  1. METROGEL [Suspect]
     Active Substance: METRONIDAZOLE
     Indication: ROSACEA
     Route: 061
     Dates: start: 201211, end: 201302
  2. OLIVE OIL BAR SOAP [Concomitant]
     Indication: THERAPEUTIC SKIN CARE TOPICAL
     Route: 061
  3. SPF 40 [Concomitant]
     Indication: PROPHYLAXIS AGAINST SOLAR RADIATION
     Route: 061
  4. PROBIOTICS [Concomitant]
     Active Substance: PROBIOTICS NOS
     Indication: GASTRIC DISORDER

REACTIONS (3)
  - Erythema [Recovered/Resolved]
  - Dry skin [Recovered/Resolved]
  - Drug ineffective [Recovered/Resolved]

NARRATIVE: CASE EVENT DATE: 201211
